FAERS Safety Report 15796026 (Version 2)
Quarter: 2019Q3

REPORT INFORMATION
  Report Type: Spontaneous
  Country: MY (occurrence: MY)
  Receive Date: 20190107
  Receipt Date: 20190729
  Transmission Date: 20191004
  Serious: Yes (Other)
  Sender: FDA-Public Use
  Company Number: MY-SUN PHARMACEUTICAL INDUSTRIES LTD-2018R1-195455

PATIENT
  Age: 53 Year
  Sex: Male

DRUGS (14)
  1. FORTUM [Concomitant]
     Active Substance: CEFTAZIDIME
     Indication: TISSUE INFILTRATION
     Dosage: UNK
     Route: 061
  2. AMPHOTERICIN B LIPOSOME [Suspect]
     Active Substance: AMPHOTERICIN B
     Indication: KERATITIS FUNGAL
     Dosage: UNK
     Route: 061
  3. FLUCONAZOLE. [Concomitant]
     Active Substance: FLUCONAZOLE
     Dosage: UNK
     Route: 061
  4. NATAMYCIN [Suspect]
     Active Substance: NATAMYCIN
     Indication: KERATITIS FUNGAL
     Dosage: UNK
     Route: 065
  5. FLUCONAZOLE. [Concomitant]
     Active Substance: FLUCONAZOLE
     Indication: KERATITIS FUNGAL
     Dosage: UNK
     Route: 048
  6. DEXAMETHASONE. [Concomitant]
     Active Substance: DEXAMETHASONE
     Indication: WOUND
  7. ITRACONAZOLE. [Suspect]
     Active Substance: ITRACONAZOLE
     Indication: KERATITIS FUNGAL
     Dosage: UNK
     Route: 048
  8. VANCOMYCIN [Concomitant]
     Active Substance: VANCOMYCIN
     Indication: TISSUE INFILTRATION
     Dosage: UNK
     Route: 065
  9. AMIKACIN. [Suspect]
     Active Substance: AMIKACIN
     Indication: KERATITIS FUNGAL
     Dosage: UNK
     Route: 061
  10. DEXAMETHASONE. [Concomitant]
     Active Substance: DEXAMETHASONE
     Indication: TISSUE INFILTRATION
     Dosage: UNK
     Route: 065
  11. VORICONAZOLE. [Concomitant]
     Active Substance: VORICONAZOLE
     Indication: KERATITIS FUNGAL
     Dosage: UNK
     Route: 065
  12. FORTUM [Concomitant]
     Active Substance: CEFTAZIDIME
     Indication: WOUND
  13. CLARITHROMYCIN. [Suspect]
     Active Substance: CLARITHROMYCIN
     Indication: KERATITIS FUNGAL
     Dosage: UNK
     Route: 065
  14. VANCOMYCIN [Concomitant]
     Active Substance: VANCOMYCIN
     Indication: WOUND

REACTIONS (2)
  - Corneal thinning [Recovering/Resolving]
  - Endophthalmitis [Recovering/Resolving]
